FAERS Safety Report 8198894-X (Version None)
Quarter: 2012Q1

REPORT INFORMATION
  Report Type: 
  Country: None (occurrence: None)
  Receive Date: 20120309
  Receipt Date: 20120305
  Transmission Date: 20120608
  Serious: Yes (Hospitalization)
  Sender: FDA-Public Use
  Company Number: US-BAYER-2011-069931

PATIENT
  Age: 43 Year
  Sex: Female
  Weight: 100 kg

DRUGS (20)
  1. CYTOMEL [Concomitant]
     Dosage: 25 ?G, BID
  2. CYMBALTA [Concomitant]
     Dosage: 90 MG, QD
     Route: 048
  3. INDERAL [Concomitant]
     Indication: MIGRAINE
  4. INDERAL [Concomitant]
     Indication: BLOOD PRESSURE ABNORMAL
  5. GABAPENTIN [Concomitant]
     Dosage: 300 MG, QID
     Route: 048
  6. DIAMOX ER [Concomitant]
     Dosage: 500 MG, BID
  7. MYERS B5, B6, B COMPLEX, B12, MG/CALCIUM/VITAMIN C 10CC/5GM [Concomitant]
     Dosage: 60 ML, UNK
     Route: 042
  8. SYNTHROID [Concomitant]
     Dosage: 75 ?G, UNK
  9. OXYCODONE HCL [Concomitant]
     Dosage: 5 MG, UNK
     Route: 048
  10. COLACE [Concomitant]
     Dosage: 100 MG, QD
     Route: 048
  11. YAZ [Suspect]
     Indication: CONTRACEPTION
     Dosage: UNK
     Dates: start: 20010101
  12. OXYCONTIN [Concomitant]
     Dosage: 20 MG, BID
  13. ZOLPIDEM [Concomitant]
     Dosage: 12.5 MG, QD
     Route: 048
  14. GLUTATHIONE [Concomitant]
     Dosage: 1000 MG, UNK
  15. ALLEGRA [Concomitant]
     Dosage: 180 MG, QD
     Route: 048
  16. MAXALT [Concomitant]
     Dosage: UNK UNK, PRN
     Route: 048
  17. DROSPIRENONE AND ETHINYL ESTRADIOL [Suspect]
     Indication: CONTRACEPTION
     Dosage: UNK
     Dates: start: 20010101
  18. TIZANIDINE HCL [Concomitant]
     Dosage: 4 MG, BID
     Route: 048
  19. YASMIN [Suspect]
     Indication: CONTRACEPTION
     Dosage: UNK
     Dates: start: 20010101
  20. HYDROCHLOROTHIAZIDE [Concomitant]
     Dosage: 25 MG, QD
     Route: 048

REACTIONS (4)
  - PULMONARY EMBOLISM [None]
  - ANXIETY [None]
  - PAIN [None]
  - EMOTIONAL DISTRESS [None]
